FAERS Safety Report 8383588-8 (Version None)
Quarter: 2012Q2

REPORT INFORMATION
  Report Type: 
  Country: None (occurrence: None)
  Receive Date: 20120524
  Receipt Date: 20120518
  Transmission Date: 20120825
  Serious: Yes (Disabling, Congenital Anomaly)
  Sender: FDA-Public Use
  Company Number: GB-TEVA-339258ISR

PATIENT
  Sex: Male
  Weight: 19 kg

DRUGS (1)
  1. LEVETIRACETAM [Suspect]
     Route: 064

REACTIONS (3)
  - IRRITABILITY [None]
  - DEVELOPMENTAL DELAY [None]
  - SPEECH DISORDER DEVELOPMENTAL [None]
